FAERS Safety Report 6470267-7 (Version None)
Quarter: 2009Q4

REPORT INFORMATION
  Report Type: 
  Country: None (occurrence: None)
  Receive Date: 20091203
  Receipt Date: 20091124
  Transmission Date: 20100525
  Serious: Yes (Death, Hospitalization, Other)
  Sender: FDA-Public Use
  Company Number: PE-JNJFOC-20091103158

PATIENT
  Age: 68 Year
  Sex: Male

DRUGS (1)
  1. REMICADE [Suspect]
     Indication: ANKYLOSING SPONDYLITIS
     Route: 042
     Dates: start: 20090806

REACTIONS (14)
  - ANAEMIA [None]
  - BACK PAIN [None]
  - DEATH [None]
  - DEPRESSION [None]
  - GASTROINTESTINAL HAEMORRHAGE [None]
  - HEPATITIS [None]
  - HYPOTENSION [None]
  - MULTI-ORGAN FAILURE [None]
  - OESOPHAGITIS [None]
  - PAIN IN EXTREMITY [None]
  - PNEUMONIA [None]
  - SEPSIS [None]
  - SPLENOMEGALY [None]
  - TREMOR [None]
